FAERS Safety Report 8367895-0 (Version None)
Quarter: 2012Q1

REPORT INFORMATION
  Report Type: 
  Country: None (occurrence: None)
  Receive Date: 20120323
  Receipt Date: 20110801
  Transmission Date: 20120608
  Serious: Yes (Other)
  Sender: FDA-Public Use
  Company Number: 163-21880-11080255

PATIENT
  Age: 75 Year
  Sex: Male
  Weight: 70.7611 kg

DRUGS (10)
  1. REVLIMID [Suspect]
     Indication: MULTIPLE MYELOMA
     Dosage: 10 MG, DAILY X 21 DAYS EVERY 28 DAYS, PO
     Route: 048
     Dates: start: 20110712, end: 20110725
  2. ISOSORBIDE (ISOSORBIDE) [Concomitant]
  3. LISINOPRIL [Concomitant]
  4. ALLOPURINOL [Concomitant]
  5. DILTIAZEM [Concomitant]
  6. GLIPIZIDE [Concomitant]
  7. FISH OIL (FISH OIL) [Concomitant]
  8. LIPITOR [Concomitant]
  9. RANITIDINE HYDROCHLORIDE [Concomitant]
  10. CALCITRIOL [Concomitant]

REACTIONS (3)
  - DIZZINESS [None]
  - LOSS OF CONSCIOUSNESS [None]
  - DEHYDRATION [None]
